FAERS Safety Report 5530238-1 (Version None)
Quarter: 2007Q4

REPORT INFORMATION
  Report Type: 
  Country: None (occurrence: None)
  Receive Date: 20071130
  Receipt Date: 20071126
  Transmission Date: 20080405
  Serious: Yes (Death, Other)
  Sender: FDA-Public Use
  Company Number: FR-BRISTOL-MYERS SQUIBB COMPANY-13993837

PATIENT
  Age: 74 Year
  Sex: Female

DRUGS (2)
  1. METHOTREXATE [Suspect]
     Indication: RHEUMATOID ARTHRITIS
  2. GRANULOCYTE CSF [Suspect]

REACTIONS (4)
  - HAEMORRHAGE INTRACRANIAL [None]
  - PANCYTOPENIA [None]
  - RENAL FAILURE [None]
  - SEPTIC SHOCK [None]
